FAERS Safety Report 9728517 (Version 2)
Quarter: 2013Q4

REPORT INFORMATION
  Report Type: Spontaneous
  Country: BR (occurrence: BR)
  Receive Date: 20131204
  Receipt Date: 20131213
  Transmission Date: 20140711
  Serious: Yes (Other)
  Sender: FDA-Public Use
  Company Number: BR-VERTEX PHARMACEUTICALS INC-2013-011539

PATIENT
  Sex: 0

DRUGS (3)
  1. INCIVO [Suspect]
     Indication: PRODUCT USED FOR UNKNOWN INDICATION
     Route: 048
     Dates: start: 2013
  2. INTERFERONS [Suspect]
     Indication: PRODUCT USED FOR UNKNOWN INDICATION
  3. RIBAVIRIN [Suspect]
     Indication: PRODUCT USED FOR UNKNOWN INDICATION

REACTIONS (2)
  - Hepatic failure [Unknown]
  - Ascites [Unknown]
